FAERS Safety Report 21239894 (Version 1)
Quarter: 2022Q3

REPORT INFORMATION
  Report Type: Spontaneous
  Country: US (occurrence: None)
  Receive Date: 20220820
  Receipt Date: 20220820
  Transmission Date: 20221026
  Serious: Yes (Hospitalization)
  Sender: FDA-Public Use
  Company Number: None

PATIENT
  Age: 92 Year
  Sex: 0
  Weight: 61.51 kg

DRUGS (12)
  1. SPRYCEL [Suspect]
     Active Substance: DASATINIB
     Dosage: FREQUENCY : DAILY;?
     Route: 048
     Dates: start: 20220218, end: 20220817
  2. CHLORTHALIDONE [Concomitant]
     Active Substance: CHLORTHALIDONE
  3. CHOLECALCIFEROL [Concomitant]
     Active Substance: CHOLECALCIFEROL
  4. CINNAMON [Concomitant]
     Active Substance: CINNAMON
  5. COLESTID [Concomitant]
     Active Substance: COLESTIPOL HYDROCHLORIDE
  6. FISH OIL [Concomitant]
     Active Substance: FISH OIL
  7. GARLIC [Concomitant]
     Active Substance: GARLIC
  8. HYDREA [Concomitant]
     Active Substance: HYDROXYUREA
  9. MAGNESIUM [Concomitant]
     Active Substance: MAGNESIUM
  10. MESALAMINE [Concomitant]
     Active Substance: MESALAMINE
  11. VITAMINS [Concomitant]
     Active Substance: VITAMINS
  12. SYNTHROID [Concomitant]
     Active Substance: LEVOTHYROXINE SODIUM

REACTIONS (1)
  - Dyspnoea [None]

NARRATIVE: CASE EVENT DATE: 20220817
